FAERS Safety Report 10459738 (Version 2)
Quarter: 2015Q1

REPORT INFORMATION
  Report Type: Spontaneous
  Country: US (occurrence: None)
  Receive Date: 20140915
  Receipt Date: 20150303
  Transmission Date: 20150720
  Serious: Yes (Other)
  Sender: FDA-Public Use
  Company Number: 2014SA122125

PATIENT
  Sex: Male

DRUGS (1)
  1. MENTHOL. [Suspect]
     Active Substance: MENTHOL
     Indication: ANALGESIC THERAPY

REACTIONS (9)
  - Surgery [None]
  - Wrist surgery [None]
  - Feeling abnormal [None]
  - Product quality issue [None]
  - Liquid product physical issue [None]
  - Accident [None]
  - Nerve compression [None]
  - Product container issue [None]
  - Application site burn [None]
